FAERS Safety Report 4419663-X (Version None)
Quarter: 2004Q3

REPORT INFORMATION
  Report Type: 
  Country: None (occurrence: None)
  Receive Date: 20040809
  Receipt Date: 20040305
  Transmission Date: 20050211
  Serious: No
  Sender: FDA-Public Use
  Company Number: US-GLAXOSMITHKLINE-A0501428A

PATIENT
  Age: 21 Year
  Sex: Female

DRUGS (1)
  1. PAXIL [Suspect]
     Indication: PANIC DISORDER
     Dosage: 30MG PER DAY
     Route: 048
     Dates: start: 20040205

REACTIONS (8)
  - ABDOMINAL PAIN UPPER [None]
  - ANORGASMIA [None]
  - DECREASED APPETITE [None]
  - LIBIDO DECREASED [None]
  - MUSCLE TIGHTNESS [None]
  - NAUSEA [None]
  - WEIGHT DECREASED [None]
  - YAWNING [None]
